FAERS Safety Report 19484746 (Version 2)
Quarter: 2021Q4

REPORT INFORMATION
  Report Type: Report from Study
  Country: PE (occurrence: PE)
  Receive Date: 20210701
  Receipt Date: 20211122
  Transmission Date: 20220303
  Serious: Yes (Other)
  Sender: FDA-Public Use
  Company Number: PE-TAKEDA-2021TUS019452

PATIENT
  Age: 56 Year
  Sex: Female

DRUGS (2)
  1. BRENTUXIMAB VEDOTIN [Suspect]
     Active Substance: BRENTUXIMAB VEDOTIN
     Indication: Hodgkin^s disease
     Dosage: 134 MILLIGRAM, 3/WEEK
     Route: 042
     Dates: start: 20210304
  2. BRENTUXIMAB VEDOTIN [Suspect]
     Active Substance: BRENTUXIMAB VEDOTIN
     Dosage: 150 MILLIGRAM, 3/WEEK
     Route: 042

REACTIONS (7)
  - Unevaluable event [Unknown]
  - Alopecia [Unknown]
  - Inflammation [Unknown]
  - Pain [Unknown]
  - Synovial cyst [Unknown]
  - Diarrhoea [Unknown]
  - Nausea [Recovered/Resolved]

NARRATIVE: CASE EVENT DATE: 20210622
